FAERS Safety Report 9970272 (Version 1)
Quarter: 2014Q1

REPORT INFORMATION
  Report Type: Spontaneous
  Country: JP (occurrence: None)
  Receive Date: 20140304
  Receipt Date: 20140304
  Transmission Date: 20141002
  Serious: Yes (Death)
  Sender: FDA-Public Use
  Company Number: JP-014796

PATIENT
  Sex: Male

DRUGS (2)
  1. DEGARELIX [Suspect]
     Indication: PROSTATE CANCER
     Route: 058
  2. DOCETAXEL [Concomitant]

REACTIONS (2)
  - Prostate cancer [None]
  - Malignant neoplasm progression [None]
